FAERS Safety Report 9217370 (Version 1)
Quarter: 2013Q2

REPORT INFORMATION
  Report Type: Spontaneous
  Country: IT (occurrence: IT)
  Receive Date: 20130408
  Receipt Date: 20130408
  Transmission Date: 20140414
  Serious: Yes (Hospitalization)
  Sender: FDA-Public Use
  Company Number: IT-ASTRAZENECA-2013SE20827

PATIENT
  Sex: Male

DRUGS (2)
  1. PROPOFOL [Suspect]
     Route: 042
  2. UNSPECIFIED (NON-AZ PRODUCT) [Concomitant]

REACTIONS (4)
  - Liver function test abnormal [Recovering/Resolving]
  - Blood lactic acid increased [Recovering/Resolving]
  - International normalised ratio increased [Recovering/Resolving]
  - Hypotension [Recovering/Resolving]
